FAERS Safety Report 19359766 (Version 2)
Quarter: 2021Q2

REPORT INFORMATION
  Report Type: Report from Study
  Country: JP (occurrence: JP)
  Receive Date: 20210601
  Receipt Date: 20210621
  Transmission Date: 20210717
  Serious: Yes (Other)
  Sender: FDA-Public Use
  Company Number: JP-BEH-2021132241

PATIENT
  Age: 45 Year
  Sex: Female

DRUGS (3)
  1. HUMAN IMMUNOGLOBULIN (NON?COMPANY) [Suspect]
     Active Substance: HUMAN IMMUNOGLOBULIN G
     Indication: AUTOIMMUNE MYOSITIS
     Route: 042
  2. HUMAN IMMUNOGLOBULIN (NON?COMPANY) [Suspect]
     Active Substance: HUMAN IMMUNOGLOBULIN G
     Dosage: UNK
     Route: 042
  3. PREDNISOLONE. [Concomitant]
     Active Substance: PREDNISOLONE
     Dosage: 35 MILLIGRAM, QD
     Route: 048

REACTIONS (4)
  - Pulmonary embolism [Unknown]
  - Off label use [Unknown]
  - Deep vein thrombosis [Unknown]
  - No adverse event [Unknown]
